FAERS Safety Report 14659295 (Version 7)
Quarter: 2020Q2

REPORT INFORMATION
  Report Type: Report from Study
  Country: FI (occurrence: FI)
  Receive Date: 20180320
  Receipt Date: 20200609
  Transmission Date: 20200713
  Serious: Yes (Death, Life-Threatening, Hospitalization, Disabling)
  Sender: FDA-Public Use
  Company Number: FI-BIOGEN-2018BI00543141

PATIENT
  Age: 39 Year
  Sex: Female
  Weight: 134 kg

DRUGS (29)
  1. HISTEC [Concomitant]
     Active Substance: CETIRIZINE HYDROCHLORIDE
     Indication: HYPERSENSITIVITY
     Route: 048
     Dates: start: 20160101, end: 20200129
  2. PENOMAX [Concomitant]
     Active Substance: PIVMECILLINAM HYDROCHLORIDE
     Indication: PYELONEPHRITIS
     Route: 065
     Dates: start: 20190123
  3. CANDESARTAN ACTAVIS [Concomitant]
     Active Substance: CANDESARTAN
     Indication: HYPERTENSION
     Route: 048
     Dates: start: 20190913, end: 20200128
  4. AMLODIPIN SANDOZ [Concomitant]
     Indication: HYPERTENSION
     Route: 048
     Dates: start: 20170228, end: 20200128
  5. KALORID [Concomitant]
     Indication: OEDEMA
     Route: 048
     Dates: start: 20200125, end: 20200129
  6. TYSABRI [Suspect]
     Active Substance: NATALIZUMAB
     Indication: RELAPSING-REMITTING MULTIPLE SCLEROSIS
     Route: 050
     Dates: start: 20090507, end: 20100518
  7. GABAPENTIN ACCORD [Concomitant]
     Active Substance: GABAPENTIN
     Indication: PAIN
     Route: 048
     Dates: start: 20180403
  8. VENLAFAIXIN ORION [Concomitant]
     Indication: DEPRESSION
     Route: 048
     Dates: start: 20160101, end: 20190117
  9. OXYCODONE [Concomitant]
     Active Substance: OXYCODONE
     Indication: NEOPLASM MALIGNANT
     Dosage: 10 TO 30 MG
     Route: 048
     Dates: start: 20190111
  10. PANTOPRAZOL KRKA [Concomitant]
     Active Substance: PANTOPRAZOLE
     Indication: GASTROINTESTINAL DISORDER
     Route: 048
     Dates: start: 20190116, end: 20190117
  11. VALAVIR (VALACICLOVIR HYDROCHLORIDE) [Concomitant]
     Indication: PROPHYLAXIS
     Route: 048
     Dates: start: 20190814, end: 20200128
  12. SIRDALUD [Concomitant]
     Active Substance: TIZANIDINE
     Indication: MULTIPLE SCLEROSIS
     Dosage: 4MM ORAL THREE TIMES DAILY
     Route: 048
     Dates: start: 20160101
  13. ZOLT [Concomitant]
     Indication: GASTROINTESTINAL DISORDER
     Route: 048
     Dates: start: 20171214, end: 20200129
  14. SPIRONOLACTONE. [Concomitant]
     Active Substance: SPIRONOLACTONE
     Indication: HYPERTENSION
     Route: 048
     Dates: start: 20200121, end: 20200128
  15. VENLAFAIXIN ORION [Concomitant]
     Route: 048
     Dates: start: 20200117, end: 20200129
  16. PANACOD 500/30 MG [Concomitant]
     Indication: PAIN
     Dosage: 1000/60 MG ORAL 3 TIMES DAILY
     Route: 048
     Dates: start: 20180614, end: 20190117
  17. TRIMOPAN (TRIMETHOPRIM) [Concomitant]
     Indication: ANTIBIOTIC PROPHYLAXIS
     Route: 048
     Dates: start: 20200128, end: 20200129
  18. CEFUROXIME. [Concomitant]
     Active Substance: CEFUROXIME
     Indication: PYELONEPHRITIS
     Route: 065
     Dates: start: 20190417
  19. LYRICA [Concomitant]
     Active Substance: PREGABALIN
     Indication: CANCER PAIN
     Route: 048
     Dates: start: 20200107, end: 20200129
  20. OPAMOX [Concomitant]
     Active Substance: OXAZEPAM
     Indication: DEPRESSION
     Route: 048
     Dates: start: 20190927, end: 20200129
  21. FURESIS [Concomitant]
     Active Substance: FUROSEMIDE
     Indication: OEDEMA DUE TO CARDIAC DISEASE
     Dosage: 60+40MG/ORAL/DAILY EDEMA
     Route: 048
     Dates: start: 20200125, end: 20200129
  22. CANDESARTAN ORION [Concomitant]
     Active Substance: CANDESARTAN
     Indication: HYPERTENSION
     Route: 048
     Dates: start: 20130101
  23. NITROFURC [Concomitant]
     Indication: URINARY TRACT INFECTION
     Dosage: 75/750MG ONCE DAILY
     Route: 065
     Dates: start: 20190124
  24. MIRTAZAPINE. [Concomitant]
     Active Substance: MIRTAZAPINE
     Indication: DEPRESSION
     Route: 048
     Dates: start: 20121128, end: 20200128
  25. TECFIDERA [Suspect]
     Active Substance: DIMETHYL FUMARATE
     Indication: MULTIPLE SCLEROSIS
     Route: 048
     Dates: start: 20180614
  26. BISOPROLOL ACTAVIS [Concomitant]
     Active Substance: BISOPROLOL
     Indication: HYPERTENSION
     Route: 048
     Dates: start: 20170228, end: 20200128
  27. SIRDALUD [Concomitant]
     Active Substance: TIZANIDINE
     Dosage: 4MM ORAL THREE TIMES DAILY
     Route: 048
     Dates: start: 20191021, end: 20200129
  28. THYROXIN [Concomitant]
     Active Substance: LEVOTHYROXINE
     Indication: HYPOTHYROIDISM
     Route: 048
     Dates: start: 20120917, end: 20200128
  29. INVANZ [Concomitant]
     Active Substance: ERTAPENEM SODIUM
     Indication: PYELONEPHRITIS
     Route: 065
     Dates: start: 20190115

REACTIONS (2)
  - Breast cancer recurrent [Not Recovered/Not Resolved]
  - Invasive ductal breast carcinoma [Fatal]

NARRATIVE: CASE EVENT DATE: 201709
